FAERS Safety Report 7268655-4 (Version None)
Quarter: 2011Q1

REPORT INFORMATION
  Report Type: 
  Country: None (occurrence: None)
  Receive Date: 20110124
  Receipt Date: 20110111
  Transmission Date: 20110831
  Serious: Yes (Hospitalization)
  Sender: FDA-Public Use
  Company Number: AE 2010-425

PATIENT
  Age: 14 Year
  Sex: Female

DRUGS (3)
  1. DOXYCYCLINE [Suspect]
     Indication: LYME DISEASE
     Dates: start: 20101101, end: 20101201
  2. MOTRIN [Concomitant]
  3. GASTROCROM [Suspect]
     Indication: GASTROENTERITIS EOSINOPHILIC
     Dosage: 2 AMPULES QID, PO
     Route: 048
     Dates: start: 20101101

REACTIONS (1)
  - ABDOMINAL PAIN [None]
